FAERS Safety Report 18104425 (Version 1)
Quarter: 2020Q3

REPORT INFORMATION
  Report Type: Spontaneous
  Country: US (occurrence: US)
  Receive Date: 20200803
  Receipt Date: 20200803
  Transmission Date: 20201103
  Serious: Yes (Hospitalization)
  Sender: FDA-Public Use
  Company Number: None

PATIENT
  Age: 18 Year
  Sex: Male

DRUGS (1)
  1. HUMIRA [Suspect]
     Active Substance: ADALIMUMAB
     Indication: CROHN^S DISEASE
     Dosage: ?          OTHER FREQUENCY:EVERY 2 WEEKS;?
     Route: 058

REACTIONS (7)
  - Dyspnoea [None]
  - Headache [None]
  - Abdominal pain upper [None]
  - Pallor [None]
  - Fatigue [None]
  - Dry skin [None]
  - Abdominal distension [None]

NARRATIVE: CASE EVENT DATE: 20200731
